FAERS Safety Report 19511686 (Version 2)
Quarter: 2022Q1

REPORT INFORMATION
  Report Type: Spontaneous
  Country: US (occurrence: US)
  Receive Date: 20210709
  Receipt Date: 20220321
  Transmission Date: 20220423
  Serious: No
  Sender: FDA-Public Use
  Company Number: US-SA-SAC20210707001217

PATIENT
  Sex: Female

DRUGS (5)
  1. DUPIXENT [Suspect]
     Active Substance: DUPILUMAB
     Indication: Dermatitis atopic
     Dosage: 600 MG, LOADING DOSE
     Route: 058
  2. DUPIXENT [Suspect]
     Active Substance: DUPILUMAB
     Dosage: 300 MG, QOW
     Route: 058
  3. BACLOFEN [Concomitant]
     Active Substance: BACLOFEN
  4. OXYCODONE [Concomitant]
     Active Substance: OXYCODONE
  5. LIDEX [Concomitant]
     Active Substance: FLUOCINONIDE

REACTIONS (1)
  - Product dose omission issue [Unknown]
